FAERS Safety Report 6297592-7 (Version None)
Quarter: 2009Q3

REPORT INFORMATION
  Report Type: 
  Country: None (occurrence: None)
  Receive Date: 20090805
  Receipt Date: 20090722
  Transmission Date: 20100115
  Serious: Yes (Hospitalization, Other)
  Sender: FDA-Public Use
  Company Number: PHHY2009IE05597

PATIENT
  Sex: Female
  Weight: 74 kg

DRUGS (3)
  1. CLOZARIL [Suspect]
     Indication: SCHIZOPHRENIA
     Dosage: 50 MG, BID
     Route: 048
     Dates: start: 20090126, end: 20090216
  2. FLUCLOXACILLIN [Concomitant]
     Indication: CELLULITIS
     Dosage: 250 MG, QDS
  3. CILEST [Concomitant]
     Indication: ORAL CONTRACEPTION
     Dosage: 35/250 MCG, QD
     Route: 048
     Dates: start: 20080101

REACTIONS (17)
  - ABDOMINAL PAIN UPPER [None]
  - BLOOD CULTURE POSITIVE [None]
  - CELLULITIS [None]
  - GENERAL PHYSICAL HEALTH DETERIORATION [None]
  - HEADACHE [None]
  - INTENTIONAL SELF-INJURY [None]
  - MALAISE [None]
  - MYOCARDITIS [None]
  - NAUSEA [None]
  - NEUTROPHIL COUNT DECREASED [None]
  - OROPHARYNGEAL PAIN [None]
  - PLATELET COUNT DECREASED [None]
  - PYREXIA [None]
  - SEDATION [None]
  - TACHYCARDIA [None]
  - TONSILLAR HYPERTROPHY [None]
  - WHITE BLOOD CELL COUNT DECREASED [None]
